FAERS Safety Report 21214301 (Version 1)
Quarter: 2022Q3

REPORT INFORMATION
  Report Type: Spontaneous
  Country: US (occurrence: US)
  Receive Date: 20220816
  Receipt Date: 20220816
  Transmission Date: 20221026
  Serious: No
  Sender: FDA-Public Use
  Company Number: US-ALFASIGMA USA, INC.-2022US003215

PATIENT

DRUGS (2)
  1. ZELNORM [Suspect]
     Active Substance: TEGASEROD MALEATE
     Indication: Constipation
     Dosage: 6 MG, BID
     Route: 048
     Dates: start: 202205
  2. ZELNORM [Suspect]
     Active Substance: TEGASEROD MALEATE
     Dosage: 6 MG, BID
     Route: 048
     Dates: start: 20220524, end: 20220529

REACTIONS (2)
  - Oedema peripheral [Recovered/Resolved]
  - Off label use [Unknown]

NARRATIVE: CASE EVENT DATE: 20220501
